FAERS Safety Report 11276734 (Version 2)
Quarter: 2015Q3

REPORT INFORMATION
  Report Type: Report from Study
  Country: US (occurrence: US)
  Receive Date: 20150716
  Receipt Date: 20150716
  Transmission Date: 20151125
  Serious: Yes (Other)
  Sender: FDA-Public Use
  Company Number: US-SANOFI-AVENTIS-2013SA042099

PATIENT
  Age: 53 Year
  Sex: Female

DRUGS (2)
  1. AUBAGIO [Suspect]
     Active Substance: TERIFLUNOMIDE
     Indication: MULTIPLE SCLEROSIS
     Dosage: 16 DAYS AGO, ON OR ABOUT 03-APR-2013
     Route: 048
     Dates: start: 20150617, end: 20150626
  2. AUBAGIO [Suspect]
     Active Substance: TERIFLUNOMIDE
     Indication: MULTIPLE SCLEROSIS
     Dosage: 16 DAYS AGO, ON OR ABOUT 03-APR-2013
     Route: 048
     Dates: start: 20130403, end: 20130516

REACTIONS (6)
  - Walking aid user [Unknown]
  - Back pain [Unknown]
  - Headache [Unknown]
  - Hypoaesthesia [Not Recovered/Not Resolved]
  - Paraesthesia [Not Recovered/Not Resolved]
  - Oral disorder [Unknown]

NARRATIVE: CASE EVENT DATE: 2013
